FAERS Safety Report 18695347 (Version 2)
Quarter: 2021Q1

REPORT INFORMATION
  Report Type: Spontaneous
  Country: US (occurrence: US)
  Receive Date: 20210104
  Receipt Date: 20210104
  Transmission Date: 20210419
  Serious: No
  Sender: FDA-Public Use
  Company Number: US-PFIZER INC-2020516091

PATIENT
  Age: 48 Year

DRUGS (13)
  1. DEMEROL [Suspect]
     Active Substance: MEPERIDINE HYDROCHLORIDE
     Dosage: UNK
  2. ASPIRIN [ACETYLSALICYLIC ACID] [Suspect]
     Active Substance: ASPIRIN
     Dosage: UNK
  3. GADOLINIUM [Suspect]
     Active Substance: GADOLINIUM
     Dosage: UNK
  4. IBUPROFEN. [Suspect]
     Active Substance: IBUPROFEN
     Dosage: UNK
  5. REGLAN [Suspect]
     Active Substance: METOCLOPRAMIDE HYDROCHLORIDE
     Dosage: UNK
  6. BACITRACIN. [Suspect]
     Active Substance: BACITRACIN
     Dosage: UNK
  7. HALDOL [Suspect]
     Active Substance: HALOPERIDOL
     Dosage: UNK
  8. MELOXICAM. [Suspect]
     Active Substance: MELOXICAM
     Dosage: UNK
  9. COMPAZINE [Suspect]
     Active Substance: PROCHLORPERAZINE MALEATE
     Dosage: UNK
  10. CYMBALTA [Suspect]
     Active Substance: DULOXETINE HYDROCHLORIDE
     Dosage: UNK
  11. TRAMADOL. [Suspect]
     Active Substance: TRAMADOL
     Dosage: UNK
  12. DEPAKOTE [Suspect]
     Active Substance: DIVALPROEX SODIUM
     Dosage: UNK
  13. TRAZODONE [Suspect]
     Active Substance: TRAZODONE HYDROCHLORIDE
     Dosage: UNK

REACTIONS (1)
  - Drug hypersensitivity [Unknown]
